FAERS Safety Report 6010225-X (Version None)
Quarter: 2008Q4

REPORT INFORMATION
  Report Type: 
  Country: None (occurrence: None)
  Receive Date: 20081218
  Receipt Date: 20080212
  Transmission Date: 20090506
  Serious: No
  Sender: FDA-Public Use
  Company Number: A0700648A

PATIENT
  Age: 63 Year
  Sex: Male
  Weight: 125 kg

DRUGS (4)
  1. FLUTICASONE PROPIONATE [Suspect]
     Indication: NASAL CONGESTION
     Dosage: 4PUFF AT NIGHT
     Route: 045
     Dates: start: 20071215, end: 20071217
  2. SALINE NASAL SPRAY [Concomitant]
  3. ASTELIN [Concomitant]
     Dates: start: 20071215, end: 20071217
  4. ZYRTEC [Concomitant]
     Dates: start: 20061201

REACTIONS (4)
  - DRUG INEFFECTIVE [None]
  - HYPERSENSITIVITY [None]
  - NASAL CONGESTION [None]
  - PRODUCT QUALITY ISSUE [None]
